FAERS Safety Report 4294034-8 (Version None)
Quarter: 2004Q1

REPORT INFORMATION
  Report Type: 
  Country: None (occurrence: None)
  Receive Date: 20040211
  Receipt Date: 20040122
  Transmission Date: 20041129
  Serious: Yes (Hospitalization, Other)
  Sender: FDA-Public Use
  Company Number: USA040157204

PATIENT
  Age: 56 Year
  Sex: Female
  Weight: 94 kg

DRUGS (3)
  1. HUMULIN N [Suspect]
     Dosage: 5 U/DAY
     Dates: start: 20020101
  2. CELEBREX [Concomitant]
  3. LANTUS [Concomitant]

REACTIONS (2)
  - SWELLING [None]
  - WEIGHT DECREASED [None]
